FAERS Safety Report 9136570 (Version 2)
Quarter: 2013Q3

REPORT INFORMATION
  Report Type: Spontaneous
  Country: FR (occurrence: FR)
  Receive Date: 20130304
  Receipt Date: 20130927
  Transmission Date: 20140515
  Serious: Yes (Life-Threatening, Other)
  Sender: FDA-Public Use
  Company Number: FR-ASTRAZENECA-2013SE14089

PATIENT
  Age: 19681 Day
  Sex: Female

DRUGS (5)
  1. DIPRIVAN [Suspect]
     Indication: ANAESTHESIA
     Route: 042
     Dates: start: 20130130, end: 20130130
  2. TRACRIUM HOSPIRA [Suspect]
     Indication: ANAESTHESIA
     Route: 042
     Dates: start: 20130130, end: 20130130
  3. KETAMINE RENAUDIN [Suspect]
     Indication: ANAESTHESIA
     Route: 051
     Dates: start: 20130130, end: 20130130
  4. MIDAZOLAM MYLAN [Suspect]
     Indication: ANAESTHESIA
     Route: 051
     Dates: start: 20130130, end: 20130130
  5. SUFENTANIL MYLAN [Suspect]
     Indication: ANAESTHESIA
     Route: 042
     Dates: start: 20130130, end: 20130130

REACTIONS (1)
  - Anaphylactic shock [Recovered/Resolved]
